FAERS Safety Report 5030551-0 (Version None)
Quarter: 2006Q2

REPORT INFORMATION
  Report Type: 
  Country: None (occurrence: None)
  Receive Date: 20060615
  Receipt Date: 20060606
  Transmission Date: 20061013
  Serious: Yes (Other)
  Sender: FDA-Public Use
  Company Number: 2006072081

PATIENT
  Age: 36 Year
  Sex: Female
  Weight: 113.3993 kg

DRUGS (4)
  1. NEOSPORIN PLUS PAIN RELIEF MAXIMUM STRENGTH (POLYMYXIN B SULFATE, BACI [Suspect]
     Indication: SKIN LACERATION
     Dosage: THIN COAT TWICE A DAY, TOPICAL
     Route: 061
     Dates: start: 20060301, end: 20060301
  2. METFORMIN [Concomitant]
  3. ATENOLOL [Concomitant]
  4. FUROSEMIDE [Concomitant]

REACTIONS (6)
  - CONDITION AGGRAVATED [None]
  - INFECTION [None]
  - OEDEMA PERIPHERAL [None]
  - SCAR [None]
  - SKIN DISCOLOURATION [None]
  - SKIN INDURATION [None]
